FAERS Safety Report 4467017-2 (Version None)
Quarter: 2004Q3

REPORT INFORMATION
  Report Type: 
  Country: None (occurrence: None)
  Receive Date: 20040929
  Receipt Date: 20040929
  Transmission Date: 20050211
  Serious: Yes (Hospitalization)
  Sender: FDA-Public Use
  Company Number: None

PATIENT
  Sex: Male

DRUGS (12)
  1. MORPHINE [Suspect]
     Indication: PAIN
     Dosage: 2 MG   Q 2 HR PRN   INTRAMUSCULAR
     Route: 030
  2. OXYCODONE HCL [Suspect]
     Indication: PAIN
     Dosage: 10 MG   Q 4 HR PRN   ORAL
     Route: 048
  3. CEFAZOLIN [Concomitant]
  4. POTASSIUM CHLORIDE [Concomitant]
  5. OMEPRAZOLE [Concomitant]
  6. FAMOTIDINE [Concomitant]
  7. CLOZAPINE [Concomitant]
  8. NORTRIPTYLINE HCL [Concomitant]
  9. MULTI-VITAMIN [Concomitant]
  10. SERTRALINE HCL [Concomitant]
  11. FOSINOPRIL [Concomitant]
  12. ENOXAPARIN SODIUM [Concomitant]

REACTIONS (1)
  - POSTOPERATIVE ILEUS [None]
